FAERS Safety Report 18366839 (Version 1)
Quarter: 2020Q4

REPORT INFORMATION
  Report Type: Spontaneous
  Country: US (occurrence: US)
  Receive Date: 20201009
  Receipt Date: 20201009
  Transmission Date: 20210114
  Serious: Yes (Other)
  Sender: FDA-Public Use
  Company Number: US-GILEAD-2020-0497829

PATIENT
  Age: 58 Year
  Sex: Female
  Weight: 53.1 kg

DRUGS (1)
  1. YESCARTA [Suspect]
     Active Substance: AXICABTAGENE CILOLEUCEL
     Indication: DIFFUSE LARGE B-CELL LYMPHOMA
     Dosage: UNK
     Route: 065
     Dates: start: 20200713, end: 20200713

REACTIONS (2)
  - Neurotoxicity [Unknown]
  - Cytokine release syndrome [Unknown]

NARRATIVE: CASE EVENT DATE: 20200718
